FAERS Safety Report 8372141-8 (Version None)
Quarter: 2012Q2

REPORT INFORMATION
  Report Type: 
  Country: None (occurrence: None)
  Receive Date: 20120521
  Receipt Date: 20120509
  Transmission Date: 20120825
  Serious: Yes (Hospitalization)
  Sender: FDA-Public Use
  Company Number: US-BIOGENIDEC-2011BI032852

PATIENT
  Age: 60 Year
  Sex: Female

DRUGS (3)
  1. TYSABRI [Suspect]
     Route: 042
     Dates: start: 20100323, end: 20110801
  2. TYSABRI [Suspect]
     Route: 042
     Dates: start: 20120323
  3. TYSABRI [Suspect]
     Indication: MULTIPLE SCLEROSIS
     Route: 042
     Dates: start: 20071107, end: 20071107

REACTIONS (3)
  - BREAST CANCER [None]
  - HERPES ZOSTER [None]
  - SMALL INTESTINAL OBSTRUCTION [None]
